FAERS Safety Report 5851701-X (Version None)
Quarter: 2008Q3

REPORT INFORMATION
  Report Type: 
  Country: None (occurrence: None)
  Receive Date: 20080820
  Receipt Date: 20080818
  Transmission Date: 20090109
  Serious: Yes (Hospitalization)
  Sender: FDA-Public Use
  Company Number: JP-BOEHRINGER INGELHEIM GMBH, GERMANY-2008-BP-12544NB

PATIENT
  Age: 66 Year
  Sex: Female

DRUGS (6)
  1. SPIRIVA [Suspect]
     Indication: CHRONIC OBSTRUCTIVE PULMONARY DISEASE
     Route: 048
     Dates: start: 20050606
  2. BUFFERIN [Suspect]
     Indication: PROPHYLAXIS
     Route: 048
     Dates: start: 20050328
  3. LENDORMIN [Concomitant]
     Indication: INSOMNIA
     Route: 048
  4. MUCOSOLVAN [Concomitant]
     Indication: PRODUCTIVE COUGH
     Route: 048
  5. MACTASE [Concomitant]
     Indication: ENZYME SUPPLEMENTATION
     Route: 048
  6. MUCODYNE [Concomitant]
     Indication: PRODUCTIVE COUGH
     Route: 048

REACTIONS (1)
  - GASTRITIS EROSIVE [None]
